FAERS Safety Report 6804704-2 (Version None)
Quarter: 2010Q2

REPORT INFORMATION
  Report Type: 
  Country: None (occurrence: None)
  Receive Date: 20100628
  Receipt Date: 20070518
  Transmission Date: 20101027
  Serious: No
  Sender: FDA-Public Use
  Company Number: US-PFIZER INC-2007039682

PATIENT
  Sex: Male

DRUGS (3)
  1. GEODON [Suspect]
     Indication: BIPOLAR DISORDER
     Dates: start: 20070101
  2. GABAPENTIN [Concomitant]
  3. TRILEPTAL [Concomitant]

REACTIONS (2)
  - DRUG EFFECT DECREASED [None]
  - SOMNOLENCE [None]
